FAERS Safety Report 8807914 (Version 2)
Quarter: 2015Q1

REPORT INFORMATION
  Report Type: Report from Study
  Country: US (occurrence: US)
  Receive Date: 20120925
  Receipt Date: 20150227
  Transmission Date: 20150721
  Serious: Yes (Death)
  Sender: FDA-Public Use
  Company Number: US-ROCHE-1095281

PATIENT
  Sex: Male

DRUGS (10)
  1. BENADRYL [Concomitant]
     Active Substance: DIPHENHYDRAMINE HYDROCHLORIDE
     Route: 048
  2. TYLENOL [Concomitant]
     Active Substance: ACETAMINOPHEN
     Route: 048
  3. ARANESP [Concomitant]
     Active Substance: DARBEPOETIN ALFA
     Route: 058
  4. OXYCODONE [Concomitant]
     Active Substance: OXYCODONE
  5. GRANISETRON [Concomitant]
     Active Substance: GRANISETRON
     Route: 042
  6. DECADRON [Concomitant]
     Active Substance: DEXAMETHASONE
     Route: 042
  7. ZOMETA [Concomitant]
     Active Substance: ZOLEDRONIC ACID
     Route: 042
  8. OXYCONTIN [Concomitant]
     Active Substance: OXYCODONE HYDROCHLORIDE
  9. TAXOTERE [Concomitant]
     Active Substance: DOCETAXEL
     Route: 042
  10. AVASTIN [Suspect]
     Active Substance: BEVACIZUMAB
     Indication: PROSTATE CANCER
     Route: 042
     Dates: start: 20061213

REACTIONS (7)
  - Death [Fatal]
  - Arthralgia [Unknown]
  - Off label use [Unknown]
  - Fatigue [Unknown]
  - Limb discomfort [Unknown]
  - Back pain [Unknown]
  - Oedema peripheral [Unknown]
